FAERS Safety Report 17355197 (Version 1)
Quarter: 2020Q1

REPORT INFORMATION
  Report Type: Spontaneous
  Country: US (occurrence: US)
  Receive Date: 20200131
  Receipt Date: 20200131
  Transmission Date: 20200409
  Serious: No
  Sender: FDA-Public Use
  Company Number: US-009507513-2001USA009095

PATIENT
  Age: 62 Year
  Sex: Male

DRUGS (3)
  1. PROVENTIL [Suspect]
     Active Substance: ALBUTEROL
     Indication: LUNG NEOPLASM MALIGNANT
     Dosage: 2 PUFF, EVERY 4 HOURS AS NEEDED
  2. PREDNISONE. [Concomitant]
     Active Substance: PREDNISONE
     Dosage: UNK, PRN
  3. KEFLEX [Concomitant]
     Active Substance: CEPHALEXIN
     Dosage: UNK, PRN

REACTIONS (9)
  - Product quality issue [Unknown]
  - No adverse event [Unknown]
  - Feeling abnormal [Recovering/Resolving]
  - Product use in unapproved indication [Unknown]
  - Dyspnoea [Recovering/Resolving]
  - Aphonia [Recovering/Resolving]
  - Product dose omission [Unknown]
  - Poor quality device used [Unknown]
  - Product availability issue [Unknown]

NARRATIVE: CASE EVENT DATE: 20200111
